FAERS Safety Report 24753733 (Version 1)
Quarter: 2024Q4

REPORT INFORMATION
  Report Type: Report from Study
  Country: US (occurrence: US)
  Receive Date: 20241219
  Receipt Date: 20241219
  Transmission Date: 20250115
  Serious: Yes (Hospitalization)
  Sender: Unknown Manufacturer
  Company Number: US-MIRUM PHARMACEUTICALS, INC.-US-MIR-24-01042

PATIENT
  Age: 17 Year
  Sex: Male
  Weight: 54.43 kg

DRUGS (1)
  1. LIVMARLI [Suspect]
     Active Substance: MARALIXIBAT CHLORIDE
     Indication: Alagille syndrome
     Dosage: 2.1 MILLILITER, QD
     Route: 065

REACTIONS (4)
  - Jaundice [Unknown]
  - Hepatic enzyme increased [Unknown]
  - Hepatic lesion [Unknown]
  - Transplant evaluation [Unknown]

NARRATIVE: CASE EVENT DATE: 20241127
